FAERS Safety Report 6122579-4 (Version None)
Quarter: 2009Q1

REPORT INFORMATION
  Report Type: 
  Country: None (occurrence: None)
  Receive Date: 20090316
  Receipt Date: 20090316
  Transmission Date: 20090719
  Serious: No
  Sender: FDA-Public Use
  Company Number: None

PATIENT
  Age: 61 Year
  Sex: Female
  Weight: 117.9352 kg

DRUGS (1)
  1. CELESTONE [Suspect]
     Indication: ROTATOR CUFF SYNDROME
     Dosage: 1 CC FIRST TIME IM
     Route: 030

REACTIONS (8)
  - DIZZINESS [None]
  - IMPATIENCE [None]
  - INCREASED APPETITE [None]
  - INSOMNIA [None]
  - MUSCULOSKELETAL PAIN [None]
  - NAUSEA [None]
  - NECK PAIN [None]
  - PAIN IN EXTREMITY [None]
